FAERS Safety Report 7732450-X (Version None)
Quarter: 2011Q3

REPORT INFORMATION
  Report Type: 
  Country: None (occurrence: None)
  Receive Date: 20110906
  Receipt Date: 20110823
  Transmission Date: 20111222
  Serious: Yes (Hospitalization, Other)
  Sender: FDA-Public Use
  Company Number: IT-ELI_LILLY_AND_COMPANY-IT201108007081

PATIENT
  Sex: Female

DRUGS (6)
  1. DAPAROX [Concomitant]
     Dosage: 20 MG, UNK
     Route: 048
  2. ZYPREXA [Suspect]
     Dosage: 150 MG, QD
     Route: 048
     Dates: start: 20110728, end: 20110728
  3. NORVASC [Concomitant]
     Dosage: 5 MG, UNK
     Route: 048
  4. ZYPREXA [Suspect]
     Dosage: UNK
     Route: 048
  5. LORAZEPAM [Concomitant]
     Dosage: 5 MG, UNK
     Route: 048
  6. ZYPREXA [Suspect]
     Dosage: UNK
     Route: 048

REACTIONS (2)
  - INTENTIONAL OVERDOSE [None]
  - SINUS TACHYCARDIA [None]
